FAERS Safety Report 5035985-6 (Version None)
Quarter: 2006Q2

REPORT INFORMATION
  Report Type: 
  Country: None (occurrence: None)
  Receive Date: 20060526
  Receipt Date: 20060424
  Transmission Date: 20061013
  Serious: Yes (Other)
  Sender: FDA-Public Use
  Company Number: 221852

PATIENT
  Age: 56 Year
  Sex: Female

DRUGS (3)
  1. RAPTIVA [Suspect]
     Indication: PSORIASIS
     Dosage: 1/WEEK, SUBCUTANEOUS
     Route: 058
     Dates: start: 20050101
  2. TOPICAL MEDICATION (GENERIC COMPONENT(S) NOT KNOWN) [Concomitant]
  3. CLOBEX [Concomitant]

REACTIONS (1)
  - JOINT STIFFNESS [None]
